FAERS Safety Report 16750483 (Version 1)
Quarter: 2019Q3

REPORT INFORMATION
  Report Type: Spontaneous
  Country: FR (occurrence: FR)
  Receive Date: 20190828
  Receipt Date: 20190828
  Transmission Date: 20191005
  Serious: Yes (Death)
  Sender: FDA-Public Use
  Company Number: FR-PFIZER INC-2019367159

PATIENT
  Sex: Female

DRUGS (2)
  1. DECONTRACTYL [MEPHENESIN;METHYL NICOTINATE] [Suspect]
     Active Substance: MEPHENESIN\METHYL NICOTINATE
     Dosage: UNK
  2. VENLAFAXINE HCL [Suspect]
     Active Substance: VENLAFAXINE HYDROCHLORIDE
     Dosage: UNK

REACTIONS (3)
  - Asphyxia [Fatal]
  - Vomiting [Fatal]
  - Drug abuse [Fatal]

NARRATIVE: CASE EVENT DATE: 20190414
